FAERS Safety Report 4642690-4 (Version None)
Quarter: 2005Q2

REPORT INFORMATION
  Report Type: 
  Country: None (occurrence: None)
  Receive Date: 20050422
  Receipt Date: 20050411
  Transmission Date: 20051028
  Serious: Yes (Other)
  Sender: FDA-Public Use
  Company Number: US-JNJFOC-20050403458

PATIENT
  Age: 27 Year
  Sex: Female
  Weight: 56.7 kg

DRUGS (4)
  1. ORTHO EVRA [Suspect]
     Route: 062
  2. ORTHO EVRA [Suspect]
     Indication: CONTRACEPTION
     Route: 062
  3. ESTROSTEP [Concomitant]
  4. ESTROSTEP [Concomitant]

REACTIONS (2)
  - MEDICATION ERROR [None]
  - OVARIAN CYST [None]
